FAERS Safety Report 7599307-9 (Version None)
Quarter: 2011Q3

REPORT INFORMATION
  Report Type: 
  Country: None (occurrence: None)
  Receive Date: 20110711
  Receipt Date: 20110624
  Transmission Date: 20111222
  Serious: Yes (Death, Other)
  Sender: FDA-Public Use
  Company Number: US-BAYER-200940423NA

PATIENT
  Age: 70 Year
  Sex: Male
  Weight: 124.72 kg

DRUGS (7)
  1. ISOSORBIDE [ISOSORBIDE] [Concomitant]
  2. LISINOPRIL [Concomitant]
     Dosage: UNK
     Dates: start: 20030101
  3. TRASYLOL [Suspect]
     Indication: CORONARY ARTERY BYPASS
     Route: 042
     Dates: start: 20040116
  4. NORVASC [Concomitant]
  5. LASIX-K [Concomitant]
     Dosage: UNK
     Dates: start: 20030101
  6. CLINDAMYCIN [Concomitant]
  7. METOPROLOL TARTRATE [Concomitant]

REACTIONS (13)
  - PAIN [None]
  - ANXIETY [None]
  - RENAL IMPAIRMENT [None]
  - EMOTIONAL DISTRESS [None]
  - RENAL INJURY [None]
  - MULTI-ORGAN FAILURE [None]
  - RENAL FAILURE [None]
  - ANHEDONIA [None]
  - FEAR [None]
  - DEATH [None]
  - UNEVALUABLE EVENT [None]
  - INJURY [None]
  - STRESS [None]
